FAERS Safety Report 7262994-9 (Version None)
Quarter: 2011Q1

REPORT INFORMATION
  Report Type: 
  Country: None (occurrence: None)
  Receive Date: 20110130
  Receipt Date: 20100930
  Transmission Date: 20110831
  Serious: No
  Sender: FDA-Public Use
  Company Number: US-ABBOTT-10P-163-0676150-00

PATIENT
  Sex: Female
  Weight: 36.32 kg

DRUGS (7)
  1. ASACOL [Concomitant]
     Route: 048
  2. HUMIRA [Suspect]
     Route: 058
     Dates: start: 20100915, end: 20100915
  3. HUMIRA [Suspect]
     Route: 058
     Dates: start: 20100930
  4. IMURAN [Concomitant]
     Indication: CROHN'S DISEASE
     Dosage: TAKES ONE AND A HALF TABLETS
     Route: 048
  5. PREMPRO [Concomitant]
     Indication: PRODUCT USED FOR UNKNOWN INDICATION
  6. ASACOL [Concomitant]
     Indication: CROHN'S DISEASE
     Dosage: WEANING OFF MEDICATION,   WILL BE STOPPING IN 1 WK, BUT HAD BEEN TAKING 3 PILLS DAILY
     Route: 048
     Dates: start: 20030101
  7. HUMIRA [Suspect]
     Indication: CROHN'S DISEASE
     Dosage: GIVEN IN MD OFFICE.
     Route: 058
     Dates: start: 20100831, end: 20100831

REACTIONS (4)
  - INJECTION SITE EXTRAVASATION [None]
  - INJECTION SITE PAIN [None]
  - INJECTION SITE ERYTHEMA [None]
  - INJECTION SITE SWELLING [None]
